FAERS Safety Report 4610367-7 (Version None)
Quarter: 2005Q1

REPORT INFORMATION
  Report Type: 
  Country: None (occurrence: None)
  Receive Date: 20050314
  Receipt Date: 20050228
  Transmission Date: 20050727
  Serious: Yes (Other)
  Sender: FDA-Public Use
  Company Number: 2005038233

PATIENT
  Sex: Female
  Weight: 58.0604 kg

DRUGS (4)
  1. ZOLOFT [Suspect]
     Indication: DEPRESSION
     Dosage: 10 MG, ORAL
     Route: 048
  2. FLURAZEPAM [Concomitant]
  3. CLONAZEPAM [Concomitant]
  4. TOLTERODINE TARTRATE [Concomitant]

REACTIONS (6)
  - BREAST CANCER FEMALE [None]
  - CRYING [None]
  - FALL [None]
  - GASTROOESOPHAGEAL REFLUX DISEASE [None]
  - HUMERUS FRACTURE [None]
  - PALPITATIONS [None]
